FAERS Safety Report 8458800-7 (Version None)
Quarter: 2012Q2

REPORT INFORMATION
  Report Type: 
  Country: None (occurrence: None)
  Receive Date: 20120622
  Receipt Date: 20120614
  Transmission Date: 20120825
  Serious: Yes (Death, Life-Threatening, Hospitalization)
  Sender: FDA-Public Use
  Company Number: JP-CELGENEUS-087-50794-11113760

PATIENT
  Sex: Male
  Weight: 62 kg

DRUGS (5)
  1. MAXIPIME [Concomitant]
     Dosage: 4 GRAM
     Route: 041
     Dates: start: 20110720, end: 20110727
  2. SOLU-CORTEF [Concomitant]
     Dosage: 100 MILLIGRAM
     Route: 041
     Dates: start: 20110720, end: 20110726
  3. VIDAZA [Suspect]
     Indication: MYELODYSPLASTIC SYNDROME
     Dosage: 32 MILLIGRAM/SQ. METER
     Route: 041
     Dates: start: 20110720, end: 20110724
  4. MEROPENEM [Concomitant]
     Dosage: 3 GRAM
     Route: 041
     Dates: start: 20110805, end: 20110808
  5. ZOSYN [Concomitant]
     Dosage: 13.5 GRAM
     Route: 041
     Dates: start: 20110801, end: 20110805

REACTIONS (3)
  - LUNG INFECTION [None]
  - PYREXIA [None]
  - MYELODYSPLASTIC SYNDROME [None]
